FAERS Safety Report 6336510-X (Version None)
Quarter: 2009Q3

REPORT INFORMATION
  Report Type: 
  Country: None (occurrence: None)
  Receive Date: 20090901
  Receipt Date: 20090821
  Transmission Date: 20100115
  Serious: Yes (Other)
  Sender: FDA-Public Use
  Company Number: US-JNJFOC-20090807133

PATIENT
  Sex: Male

DRUGS (5)
  1. DOXIL [Suspect]
     Route: 042
  2. DOXIL [Suspect]
     Indication: SARCOMA METASTATIC
     Dosage: 2 CYCLES
     Route: 042
  3. IFOSFAMIDE [Suspect]
     Indication: SARCOMA METASTATIC
     Dosage: 6 CYCLES
     Route: 065
  4. GEMCITABINE [Suspect]
     Indication: SARCOMA METASTATIC
     Dosage: 2 CYCLES
     Route: 065
  5. TAXOTERE [Suspect]
     Indication: SARCOMA METASTATIC
     Dosage: 2 CYCLES
     Route: 065

REACTIONS (3)
  - DEEP VEIN THROMBOSIS [None]
  - OFF LABEL USE [None]
  - SARCOMA METASTATIC [None]
